FAERS Safety Report 5572941-3 (Version None)
Quarter: 2007Q4

REPORT INFORMATION
  Report Type: 
  Country: None (occurrence: None)
  Receive Date: 20071219
  Receipt Date: 20071219
  Transmission Date: 20080405
  Serious: Yes (Hospitalization)
  Sender: FDA-Public Use
  Company Number: None

PATIENT
  Age: 34 Year
  Sex: Female
  Weight: 136.0791 kg

DRUGS (9)
  1. ZIPRASIDONE HCL [Suspect]
     Dosage: 60MG/DAY  PO
     Route: 048
  2. LORAZEPAM [Concomitant]
  3. PROPRANOLOL [Concomitant]
  4. TRILEPTAL [Concomitant]
  5. CLONAZEPAM [Concomitant]
  6. LEVOTHYROXINE SODIUM [Concomitant]
  7. AMBIEN [Concomitant]
  8. SENNA [Concomitant]
  9. DOCUSATE [Concomitant]

REACTIONS (2)
  - BLOOD CREATINE PHOSPHOKINASE INCREASED [None]
  - BODY TEMPERATURE INCREASED [None]
